FAERS Safety Report 10433633 (Version 3)
Quarter: 2015Q3

REPORT INFORMATION
  Report Type: Spontaneous
  Country: US (occurrence: US)
  Receive Date: 20140905
  Receipt Date: 20150811
  Transmission Date: 20151125
  Serious: Yes (Hospitalization, Other)
  Sender: FDA-Public Use
  Company Number: PHEH2013US024475

PATIENT
  Sex: Female

DRUGS (13)
  1. CLONOPIN [Concomitant]
     Active Substance: CLONAZEPAM
     Indication: PRODUCT USED FOR UNKNOWN INDICATION
     Dosage: 2 MG, BID
     Route: 048
  2. CHANTIX [Concomitant]
     Active Substance: VARENICLINE TARTRATE
     Indication: PRODUCT USED FOR UNKNOWN INDICATION
     Dosage: 1 MG, BID
     Route: 048
  3. CYMBALTA [Concomitant]
     Active Substance: DULOXETINE HYDROCHLORIDE
     Indication: PRODUCT USED FOR UNKNOWN INDICATION
     Dosage: 60 MG, QD
     Route: 048
  4. SYNTHROID [Concomitant]
     Active Substance: LEVOTHYROXINE SODIUM
     Indication: PRODUCT USED FOR UNKNOWN INDICATION
     Dosage: 150 UG, QD
     Route: 048
  5. TEKTURNA [Suspect]
     Active Substance: ALISKIREN HEMIFUMARATE
     Indication: HYPERTENSION
     Dosage: 150-300 MG/QD
     Route: 065
     Dates: start: 200912
  6. ASPIRIN. [Concomitant]
     Active Substance: ASPIRIN
     Indication: PRODUCT USED FOR UNKNOWN INDICATION
     Dosage: 325 MG, QOD
     Route: 048
  7. LEVOTHYROXINE. [Concomitant]
     Active Substance: LEVOTHYROXINE
     Indication: PRODUCT USED FOR UNKNOWN INDICATION
     Dosage: 150 UG, QD
     Route: 048
  8. AMITRIPTYLINE [Concomitant]
     Active Substance: AMITRIPTYLINE
     Indication: PRODUCT USED FOR UNKNOWN INDICATION
     Dosage: 25 MG, QD
     Route: 048
  9. SEREVENT DISKUS [Concomitant]
     Active Substance: SALMETEROL XINAFOATE
     Indication: PRODUCT USED FOR UNKNOWN INDICATION
     Dosage: 1 PUFF, BID
     Route: 055
  10. ALLOPURINOL. [Concomitant]
     Active Substance: ALLOPURINOL
     Indication: PRODUCT USED FOR UNKNOWN INDICATION
     Dosage: 100 MG, QD
     Route: 048
  11. LASIX [Concomitant]
     Active Substance: FUROSEMIDE
     Indication: PRODUCT USED FOR UNKNOWN INDICATION
     Dosage: 20 MG, BID
     Route: 048
  12. LISINOPRIL. [Concomitant]
     Active Substance: LISINOPRIL
     Indication: PRODUCT USED FOR UNKNOWN INDICATION
     Dosage: 20 MG, QD
     Route: 065
  13. CLONAZEPAM. [Concomitant]
     Active Substance: CLONAZEPAM
     Indication: PRODUCT USED FOR UNKNOWN INDICATION
     Dosage: 2 MG, BID
     Route: 048

REACTIONS (63)
  - Hypothyroidism [Unknown]
  - Injury [Unknown]
  - Disability [Unknown]
  - Hypomagnesaemia [Unknown]
  - Sinus tachycardia [Unknown]
  - Cystitis [Unknown]
  - Nausea [Unknown]
  - Chronic obstructive pulmonary disease [Unknown]
  - Anhedonia [Unknown]
  - Bronchitis [Unknown]
  - Urinary tract infection [Unknown]
  - Hypercholesterolaemia [Unknown]
  - Total lung capacity decreased [Unknown]
  - Hypoxia [Unknown]
  - Pneumonia [Unknown]
  - Breath sounds abnormal [Unknown]
  - Renal tubular necrosis [Unknown]
  - Blood potassium increased [Unknown]
  - Chronic kidney disease [Unknown]
  - Delirium [Unknown]
  - Leukocytosis [Unknown]
  - Sleep apnoea syndrome [Unknown]
  - Hypovolaemia [Unknown]
  - Toxic encephalopathy [Unknown]
  - Constipation [Unknown]
  - Hyperlipidaemia [Unknown]
  - Contusion [Unknown]
  - Laceration [Unknown]
  - Lethargy [Unknown]
  - Depression [Unknown]
  - Gastrooesophageal reflux disease [Unknown]
  - Asthma [Unknown]
  - Hyperadrenalism [Unknown]
  - Metabolic encephalopathy [Unknown]
  - Obesity [Unknown]
  - Somnolence [Unknown]
  - Vaginal haemorrhage [Unknown]
  - Hyponatraemia [Not Recovered/Not Resolved]
  - Lung infiltration [Unknown]
  - Hypotension [Unknown]
  - Acute kidney injury [Unknown]
  - Acute respiratory distress syndrome [Unknown]
  - Lymphoedema [Unknown]
  - Chest pain [Unknown]
  - Hypokalaemia [Unknown]
  - Confusional state [Unknown]
  - Dehydration [Unknown]
  - Periarthritis [Unknown]
  - Back pain [Unknown]
  - Synovial cyst [Unknown]
  - Dyspnoea [Unknown]
  - Rhabdomyolysis [Unknown]
  - Respiratory failure [Unknown]
  - Anxiety [Unknown]
  - Pain [Unknown]
  - Gout [Unknown]
  - Headache [Unknown]
  - Oedema peripheral [Unknown]
  - Bipolar disorder [Unknown]
  - Type 2 diabetes mellitus [Unknown]
  - Anaemia [Unknown]
  - Malaise [Unknown]
  - Grunting [Unknown]

NARRATIVE: CASE EVENT DATE: 2011
